FAERS Safety Report 8243455-7 (Version None)
Quarter: 2012Q1

REPORT INFORMATION
  Report Type: 
  Country: None (occurrence: None)
  Receive Date: 20120315
  Receipt Date: 20100202
  Transmission Date: 20120608
  Serious: No
  Sender: FDA-Public Use
  Company Number: PHEH2010US02208

PATIENT
  Sex: Female

DRUGS (3)
  1. FANAPT [Suspect]
     Indication: SCHIZOPHRENIA
     Dosage: 6 MG, TWICE DAILY, ORAL, 1 MG, TWICE DAILY, ORAL, 2 MG, TWICE DAILY, ORAL, 4 MG, TWICE DAILY, ORAL,
     Route: 048
  2. ABILIFY [Concomitant]
  3. ABILIFY [Concomitant]

REACTIONS (3)
  - SOMNOLENCE [None]
  - DYSARTHRIA [None]
  - DIZZINESS [None]
